FAERS Safety Report 5135437-9 (Version None)
Quarter: 2006Q4

REPORT INFORMATION
  Report Type: 
  Country: None (occurrence: None)
  Receive Date: 20061026
  Receipt Date: 20061019
  Transmission Date: 20070319
  Serious: Yes (Hospitalization)
  Sender: FDA-Public Use
  Company Number: CA-GLAXOSMITHKLINE-B0443506A

PATIENT
  Age: 63 Year
  Sex: Female

DRUGS (5)
  1. GW679769 [Suspect]
     Dosage: 90MG PER DAY
     Route: 042
     Dates: start: 20060921, end: 20060921
  2. GW679769 [Suspect]
     Dosage: 50MG PER DAY
     Route: 048
     Dates: start: 20060922, end: 20060923
  3. ZOFRAN [Suspect]
     Dosage: 8MG PER DAY
     Route: 048
     Dates: start: 20060921, end: 20060923
  4. DEXAMETHASONE 4MG TAB [Suspect]
     Dosage: 8MG PER DAY
     Route: 042
     Dates: start: 20060921, end: 20060921
  5. MOTRIN [Concomitant]
     Indication: HEADACHE
     Dosage: 400MG FOUR TIMES PER DAY
     Route: 048
     Dates: start: 20061005

REACTIONS (1)
  - FEBRILE NEUTROPENIA [None]
